FAERS Safety Report 6774848-2 (Version None)
Quarter: 2010Q2

REPORT INFORMATION
  Report Type: 
  Country: None (occurrence: None)
  Receive Date: 20100617
  Receipt Date: 20100226
  Transmission Date: 20101027
  Serious: Yes (Other)
  Sender: FDA-Public Use
  Company Number: B0660718A

PATIENT
  Sex: Female

DRUGS (1)
  1. NIQUITIN [Suspect]
     Route: 062
     Dates: start: 20080101, end: 20080101

REACTIONS (1)
  - ANGIOEDEMA [None]
